FAERS Safety Report 14586772 (Version 1)
Quarter: 2018Q1

REPORT INFORMATION
  Report Type: Spontaneous
  Country: US (occurrence: US)
  Receive Date: 20180301
  Receipt Date: 20180301
  Transmission Date: 20180509
  Serious: Yes (Other)
  Sender: FDA-Public Use
  Company Number: US-SMITH AND NEPHEW, INC-2018SMT00029

PATIENT
  Sex: Male
  Weight: 90.7 kg

DRUGS (2)
  1. COLLAGENASE SANTYL [Suspect]
     Active Substance: COLLAGENASE CLOSTRIDIUM HISTOLYTICUM
     Dosage: UNK UNK, 1X/DAY
     Route: 061
     Dates: start: 201702
  2. COLLAGENASE SANTYL [Suspect]
     Active Substance: COLLAGENASE CLOSTRIDIUM HISTOLYTICUM
     Indication: SKIN ULCER
     Dosage: UNK UNK, 1X/DAY
     Route: 061
     Dates: start: 201604

REACTIONS (4)
  - Wound complication [Not Recovered/Not Resolved]
  - Drug ineffective [Not Recovered/Not Resolved]
  - Impaired healing [Not Recovered/Not Resolved]
  - Weight decreased [Unknown]

NARRATIVE: CASE EVENT DATE: 2016
